FAERS Safety Report 23651929 (Version 1)
Quarter: 2024Q1

REPORT INFORMATION
  Report Type: Report from Study
  Country: FR (occurrence: FR)
  Receive Date: 20240320
  Receipt Date: 20240320
  Transmission Date: 20240409
  Serious: Yes (Hospitalization)
  Sender: FDA-Public Use
  Company Number: FR-SA-SAC20240315001052

PATIENT
  Age: 76 Year
  Sex: Male
  Weight: 74 kg

DRUGS (39)
  1. ISATUXIMAB [Suspect]
     Active Substance: ISATUXIMAB
     Indication: Plasma cell myeloma refractory
     Dosage: 10 MG/KG, QW
     Dates: start: 20230719, end: 20230719
  2. ISATUXIMAB [Suspect]
     Active Substance: ISATUXIMAB
     Dosage: 10 MG/KG, QW
     Dates: start: 20230811, end: 20230811
  3. ISATUXIMAB [Suspect]
     Active Substance: ISATUXIMAB
     Dosage: 10 MG/KG, BIW
     Dates: start: 20230818, end: 20230901
  4. ISATUXIMAB [Suspect]
     Active Substance: ISATUXIMAB
     Dosage: 10 MG/KG, BIW
     Dates: start: 20230915, end: 20230929
  5. ISATUXIMAB [Suspect]
     Active Substance: ISATUXIMAB
     Dosage: 10 MG/KG, BIW
     Dates: start: 20231023, end: 20231106
  6. ISATUXIMAB [Suspect]
     Active Substance: ISATUXIMAB
     Dosage: 10 MG/KG, BIW
     Dates: start: 20231121, end: 20231205
  7. ISATUXIMAB [Suspect]
     Active Substance: ISATUXIMAB
     Dosage: 10 MG/KG, BIW
     Dates: start: 20231219, end: 20240103
  8. ISATUXIMAB [Suspect]
     Active Substance: ISATUXIMAB
     Dosage: 10 MG/KG, BIW
     Dates: start: 20240116, end: 20240129
  9. DEXAMETHASONE [Suspect]
     Active Substance: DEXAMETHASONE
     Indication: Plasma cell myeloma refractory
     Dosage: 40 MG, QW
     Dates: start: 20230719, end: 20230719
  10. DEXAMETHASONE [Suspect]
     Active Substance: DEXAMETHASONE
     Dosage: 40 MG, QW
     Dates: start: 20230811, end: 20230811
  11. DEXAMETHASONE [Suspect]
     Active Substance: DEXAMETHASONE
     Dosage: 40 MG, QW
     Dates: start: 20230818, end: 20230908
  12. DEXAMETHASONE [Suspect]
     Active Substance: DEXAMETHASONE
     Dosage: 40 MG, QW
     Dates: start: 20230915, end: 20231006
  13. DEXAMETHASONE [Suspect]
     Active Substance: DEXAMETHASONE
     Dosage: 40 MG, QW
     Dates: start: 20231023, end: 20231113
  14. DEXAMETHASONE [Suspect]
     Active Substance: DEXAMETHASONE
     Dosage: 40 MG, QW
     Dates: start: 20231121, end: 20231212
  15. DEXAMETHASONE [Suspect]
     Active Substance: DEXAMETHASONE
     Dosage: 40 MG, QW
     Dates: start: 20231219, end: 20240103
  16. DEXAMETHASONE [Suspect]
     Active Substance: DEXAMETHASONE
     Dosage: 40 MG, QW
     Dates: start: 20240116, end: 20240129
  17. CARFILZOMIB [Suspect]
     Active Substance: CARFILZOMIB
     Indication: Plasma cell myeloma refractory
     Dosage: 20 MG/M2, QW
     Dates: start: 20230719, end: 20230719
  18. CARFILZOMIB [Suspect]
     Active Substance: CARFILZOMIB
     Dosage: 70 MG/M2, QW
     Dates: start: 20230811, end: 20230811
  19. CARFILZOMIB [Suspect]
     Active Substance: CARFILZOMIB
     Dosage: 70 MG/M2, BIW
     Dates: start: 20230818, end: 20230901
  20. CARFILZOMIB [Suspect]
     Active Substance: CARFILZOMIB
     Dosage: 70 MG/M2, QW
     Dates: start: 20230915, end: 20230929
  21. CARFILZOMIB [Suspect]
     Active Substance: CARFILZOMIB
     Dosage: 70 MG/M2, QW
     Dates: start: 20231023, end: 20231106
  22. CARFILZOMIB [Suspect]
     Active Substance: CARFILZOMIB
     Dosage: 70 MG/M2, QW
     Dates: start: 20231121, end: 20231205
  23. CARFILZOMIB [Suspect]
     Active Substance: CARFILZOMIB
     Dosage: 70 MG/M2, QW
     Dates: start: 20231219, end: 20240103
  24. CARFILZOMIB [Suspect]
     Active Substance: CARFILZOMIB
     Dosage: 70 MG/M2, QW
     Dates: start: 20240116, end: 20240129
  25. LANSOPRAZOLE [Concomitant]
     Active Substance: LANSOPRAZOLE
     Indication: Gastrooesophageal reflux disease
     Dosage: UNK
  26. ALFUZOSIN [Concomitant]
     Active Substance: ALFUZOSIN
     Indication: Prostatism
     Dosage: UNK
  27. VALACYCLOVIR HYDROCHLORIDE [Concomitant]
     Active Substance: VALACYCLOVIR HYDROCHLORIDE
     Indication: Antiviral prophylaxis
     Dosage: UNK
     Dates: start: 20190807
  28. BACTRIM [Concomitant]
     Active Substance: SULFAMETHOXAZOLE\TRIMETHOPRIM
     Indication: Infection prophylaxis
     Dosage: UNK
     Dates: start: 20200826
  29. ACETAMINOPHEN [Concomitant]
     Active Substance: ACETAMINOPHEN
     Indication: Premedication
     Dosage: UNK UNK, QCY
     Dates: start: 20230719
  30. FAMOTIDINE [Concomitant]
     Active Substance: FAMOTIDINE
     Indication: Premedication
     Dosage: UNK UNK, QCY
     Dates: start: 20230719
  31. POLARAMINE [Concomitant]
     Active Substance: DEXCHLORPHENIRAMINE MALEATE
     Indication: Premedication
     Dosage: UNK UNK, QCY
     Dates: start: 20230719
  32. APIXABAN [Concomitant]
     Active Substance: APIXABAN
     Indication: Pulmonary embolism
     Dosage: UNK
     Dates: start: 20230703
  33. POTASSIUM CHLORIDE [Concomitant]
     Active Substance: POTASSIUM CHLORIDE
     Indication: Hypokalaemia
     Dosage: UNK
     Dates: start: 20230706
  34. ZOPICLONE [Concomitant]
     Active Substance: ZOPICLONE
     Indication: Insomnia
     Dosage: UNK
     Dates: start: 20230706
  35. FOLIC ACID [Concomitant]
     Active Substance: FOLIC ACID
     Indication: Vitamin supplementation
     Dosage: UNK
     Dates: start: 20230701
  36. HIZENTRA [Concomitant]
     Active Substance: HUMAN IMMUNOGLOBULIN G
     Indication: Infection prophylaxis
     Dosage: UNK
     Dates: start: 20230920
  37. SMECTA [Concomitant]
     Active Substance: MONTMORILLONITE
     Dosage: UNK
     Dates: start: 20230905
  38. MIANSERIN HYDROCHLORIDE [Concomitant]
     Active Substance: MIANSERIN HYDROCHLORIDE
     Dosage: UNK
     Dates: start: 20230905
  39. OXAZEPAM [Concomitant]
     Active Substance: OXAZEPAM
     Dosage: UNK
     Dates: start: 20230905

REACTIONS (1)
  - Pneumonia respiratory syncytial viral [Recovered/Resolved]

NARRATIVE: CASE EVENT DATE: 20240130
